FAERS Safety Report 10589528 (Version 2)
Quarter: 2014Q4

REPORT INFORMATION
  Report Type: Spontaneous
  Country: US (occurrence: None)
  Receive Date: 20141114
  Receipt Date: 20141120
  Transmission Date: 20150529
  Serious: Yes (Other)
  Sender: FDA-Public Use
  Company Number: 2014-US-014558

PATIENT
  Age: 62 Year
  Sex: Female

DRUGS (1)
  1. XYREM [Suspect]
     Active Substance: SODIUM OXYBATE
     Indication: NARCOLEPSY
     Route: 048
     Dates: start: 200709, end: 2010

REACTIONS (2)
  - Knee operation [None]
  - Influenza [None]

NARRATIVE: CASE EVENT DATE: 2014
